FAERS Safety Report 8448524-4 (Version None)
Quarter: 2012Q2

REPORT INFORMATION
  Report Type: 
  Country: None (occurrence: None)
  Receive Date: 20120619
  Receipt Date: 20120601
  Transmission Date: 20120825
  Serious: Yes (Hospitalization, Other)
  Sender: FDA-Public Use
  Company Number: FR-PFIZER INC-2011133717

PATIENT
  Sex: Male

DRUGS (12)
  1. PRAVASTATIN [Concomitant]
     Indication: HYPERCHOLESTEROLAEMIA
     Dosage: 20 MG, UNK
  2. RAMIPRIL [Suspect]
     Indication: MYOCARDIAL ISCHAEMIA
     Dosage: 50 MG TOTAL
     Route: 048
     Dates: start: 20090702, end: 20090702
  3. MIRTAZAPINE [Concomitant]
     Indication: DEPRESSION
  4. ATARAX [Suspect]
     Indication: DEPRESSION
     Dosage: NI
     Route: 048
  5. TRIMEPRAZINE TARTRATE [Concomitant]
     Indication: DEPRESSION
  6. ASPIRIN [Concomitant]
     Indication: MYOCARDIAL ISCHAEMIA
     Dosage: 160 MG, UNK
  7. ATARAX [Suspect]
     Dosage: UNK
  8. LASIX [Suspect]
     Indication: MYOCARDIAL ISCHAEMIA
     Dosage: 240 MG, TOTAL
     Route: 048
     Dates: start: 20090702
  9. GLUCOPHAGE [Suspect]
     Indication: TYPE 2 DIABETES MELLITUS
     Dosage: 850 MG, TOTAL
     Route: 048
     Dates: start: 20090702
  10. BUSPAR [Suspect]
     Indication: DEPRESSION
     Route: 048
  11. TENORMIN [Suspect]
     Indication: MYOCARDIAL ISCHAEMIA
     Dosage: 400MG TOTAL
     Route: 048
     Dates: start: 20090702
  12. LYRICA [Concomitant]
     Indication: PAIN

REACTIONS (2)
  - HYPOGLYCAEMIA [None]
  - SUICIDE ATTEMPT [None]
